FAERS Safety Report 24764265 (Version 1)
Quarter: 2024Q4

REPORT INFORMATION
  Report Type: Spontaneous
  Country: US (occurrence: US)
  Receive Date: 20241223
  Receipt Date: 20241223
  Transmission Date: 20250115
  Serious: No
  Sender: ALK-ABELLO
  Company Number: US-ALK-ABELLO A/S-2024AA004400

PATIENT

DRUGS (27)
  1. ALTERNARIA ALTERNATA [Suspect]
     Active Substance: ALTERNARIA ALTERNATA
     Indication: Product used for unknown indication
  2. ASPERGILLUS FUMIGATUS [Suspect]
     Active Substance: ASPERGILLUS FUMIGATUS
     Indication: Product used for unknown indication
  3. CLADOSPORIUM CLADOSPORIOIDES [Suspect]
     Active Substance: CLADOSPORIUM CLADOSPORIOIDES
     Indication: Product used for unknown indication
  4. GIBBERELLA ZEAE [Suspect]
     Active Substance: GIBBERELLA ZEAE
     Indication: Product used for unknown indication
  5. COCHLIOBOLUS SATIVUS [Suspect]
     Active Substance: COCHLIOBOLUS SATIVUS
     Indication: Product used for unknown indication
  6. EPICOCCUM NIGRUM [Suspect]
     Active Substance: EPICOCCUM NIGRUM
     Indication: Product used for unknown indication
  7. MUCOR PLUMBEUS [Suspect]
     Active Substance: MUCOR PLUMBEUS
     Indication: Product used for unknown indication
  8. FELIS CATUS HAIR [Suspect]
     Active Substance: FELIS CATUS HAIR
     Indication: Product used for unknown indication
  9. PERIPLANETA AMERICANA [Suspect]
     Active Substance: PERIPLANETA AMERICANA
     Indication: Product used for unknown indication
  10. ANAS PLATYRHYNCHOS FEATHER\ANSER ANSER FEATHER\GALLUS GALLUS FEATHER [Suspect]
     Active Substance: ANAS PLATYRHYNCHOS FEATHER\ANSER ANSER FEATHER\GALLUS GALLUS FEATHER
     Indication: Product used for unknown indication
  11. SAROCLADIUM STRICTUM [Suspect]
     Active Substance: SAROCLADIUM STRICTUM
     Indication: Product used for unknown indication
  12. PENICILLIUM NOTATUM [Suspect]
     Active Substance: PENICILLIUM CHRYSOGENUM VAR. CHRYSOGENUM
     Indication: Product used for unknown indication
  13. FLONASE [Concomitant]
     Active Substance: FLUTICASONE PROPIONATE
  14. ARIPIPRAZOLE [Concomitant]
     Active Substance: ARIPIPRAZOLE
     Dosage: UNK
  15. ASPIRIN [Concomitant]
     Active Substance: ASPIRIN
     Dosage: UNK
  16. BRIMONIDINE [Concomitant]
     Active Substance: BRIMONIDINE TARTRATE
     Dosage: UNK
  17. BUSPIRONE HCL [Concomitant]
     Active Substance: BUSPIRONE HYDROCHLORIDE
     Dosage: UNK
  18. CLOPIDOGREL [Concomitant]
     Active Substance: CLOPIDOGREL BISULFATE
     Dosage: UNK
  19. DOXAZOSIN [Concomitant]
     Active Substance: DOXAZOSIN\DOXAZOSIN MESYLATE
     Dosage: UNK
  20. EZETIMIBE [Concomitant]
     Active Substance: EZETIMIBE
     Dosage: UNK
  21. FAMOTIDINE [Concomitant]
     Active Substance: FAMOTIDINE
     Dosage: UNK
  22. MELOXICAM [Concomitant]
     Active Substance: MELOXICAM
     Dosage: UNK
  23. MORPHINE [Concomitant]
     Active Substance: MORPHINE
     Dosage: UNK
  24. OMEPRAZOLE [Concomitant]
     Active Substance: OMEPRAZOLE
     Dosage: UNK
  25. POTASSIUM CHLORIDE [Concomitant]
     Active Substance: POTASSIUM CHLORIDE
  26. PREGABALIN [Concomitant]
     Active Substance: PREGABALIN
  27. ALLEGRA [Concomitant]
     Active Substance: FEXOFENADINE HYDROCHLORIDE
     Dosage: UNK

REACTIONS (1)
  - Tinea infection [Recovering/Resolving]
